FAERS Safety Report 5500060-0 (Version None)
Quarter: 2007Q4

REPORT INFORMATION
  Report Type: 
  Country: None (occurrence: None)
  Receive Date: 20071024
  Receipt Date: 20071016
  Transmission Date: 20080405
  Serious: Yes (Hospitalization)
  Sender: FDA-Public Use
  Company Number: MEDI-0006082

PATIENT
  Age: 2 Month
  Sex: Male
  Weight: 3.01 kg

DRUGS (3)
  1. SYNAGIS [Suspect]
     Indication: ANTIVIRAL PROPHYLAXIS
     Dosage: 15 MG/KG, INTRAMUSCULAR, 15 MG/KG, INTRAMUSCULAR, 15 MG/KG, INTRAMUSCULAR
     Route: 030
     Dates: start: 20070123, end: 20070220
  2. SYNAGIS [Suspect]
     Indication: ANTIVIRAL PROPHYLAXIS
     Dosage: 15 MG/KG, INTRAMUSCULAR, 15 MG/KG, INTRAMUSCULAR, 15 MG/KG, INTRAMUSCULAR
     Route: 030
     Dates: start: 20070123
  3. SYNAGIS [Suspect]
     Indication: ANTIVIRAL PROPHYLAXIS
     Dosage: 15 MG/KG, INTRAMUSCULAR, 15 MG/KG, INTRAMUSCULAR, 15 MG/KG, INTRAMUSCULAR
     Route: 030
     Dates: start: 20070320

REACTIONS (1)
  - RESPIRATORY DISORDER [None]
